FAERS Safety Report 13226806 (Version 1)
Quarter: 2017Q1

REPORT INFORMATION
  Report Type: Spontaneous
  Country: FR (occurrence: FR)
  Receive Date: 20170213
  Receipt Date: 20170213
  Transmission Date: 20170428
  Serious: Yes (Other)
  Sender: FDA-Public Use
  Company Number: FR-009507513-1702FRA004497

PATIENT
  Age: 45 Year
  Sex: Female

DRUGS (6)
  1. GAVISCON (ALGINIC ACID (+) ALUMINUM HYDROXIDE) [Concomitant]
     Dosage: UNK
  2. SKENAN [Concomitant]
     Active Substance: MORPHINE SULFATE
     Dosage: PROLONGED LIBERATION (LP), 30 MG, UNK
  3. KEYTRUDA [Suspect]
     Active Substance: PEMBROLIZUMAB
     Indication: MALIGNANT MELANOMA
     Dosage: 2 MG/KG EVERY THREE WEEKS
     Route: 042
     Dates: start: 20170105
  4. ACTISKENAN [Concomitant]
     Active Substance: MORPHINE SULFATE
     Dosage: 10 MG IN INTERDOSES
  5. LEVOTHYROX [Concomitant]
     Active Substance: LEVOTHYROXINE
     Dosage: UNK
  6. INIPOMP [Concomitant]
     Active Substance: PANTOPRAZOLE SODIUM
     Dosage: UNK

REACTIONS (2)
  - Condition aggravated [Recovering/Resolving]
  - Hepatocellular injury [Not Recovered/Not Resolved]

NARRATIVE: CASE EVENT DATE: 20170117
